FAERS Safety Report 13498187 (Version 1)
Quarter: 2017Q2

REPORT INFORMATION
  Report Type: Spontaneous
  Country: CA (occurrence: CA)
  Receive Date: 20170428
  Receipt Date: 20170428
  Transmission Date: 20170830
  Serious: Yes (Death, Other)
  Sender: FDA-Public Use
  Company Number: CA-GILEAD-2017-0269870

PATIENT
  Age: 68 Year
  Sex: Male

DRUGS (13)
  1. EMTRICITABINE / TENOFOVIR DISOPROXIL FUMARATE [Concomitant]
     Active Substance: EMTRICITABINE\TENOFOVIR DISOPROXIL FUMARATE
  2. RANITIDINE. [Concomitant]
     Active Substance: RANITIDINE
  3. REYATAZ [Concomitant]
     Active Substance: ATAZANAVIR SULFATE
  4. GABAPENTIN. [Concomitant]
     Active Substance: GABAPENTIN
  5. VITAMIN D                          /00107901/ [Concomitant]
     Active Substance: ERGOCALCIFEROL
  6. RITONAVIR. [Concomitant]
     Active Substance: RITONAVIR
  7. NAPROXEN. [Concomitant]
     Active Substance: NAPROXEN
  8. METHADONE [Concomitant]
     Active Substance: METHADONE HYDROCHLORIDE
  9. SYNTHROID [Concomitant]
     Active Substance: LEVOTHYROXINE SODIUM
  10. EPCLUSA [Suspect]
     Active Substance: SOFOSBUVIR\VELPATASVIR
     Indication: HEPATITIS C VIRUS TEST POSITIVE
     Dosage: 1 DF, QD
     Route: 048
  11. CLONAZEPAM. [Concomitant]
     Active Substance: CLONAZEPAM
  12. METOPROLOL. [Concomitant]
     Active Substance: METOPROLOL
  13. VENLAFAXINE XR [Concomitant]
     Active Substance: VENLAFAXINE HYDROCHLORIDE

REACTIONS (10)
  - Metabolic acidosis [Fatal]
  - Blood potassium increased [Fatal]
  - Acidosis [Fatal]
  - Acute kidney injury [Fatal]
  - Blood alkaline phosphatase increased [Fatal]
  - Abdominal pain [Fatal]
  - Aspartate aminotransferase increased [Fatal]
  - Organ failure [Fatal]
  - Pain [Fatal]
  - Therapeutic product ineffective [Fatal]
